FAERS Safety Report 10216859 (Version 1)
Quarter: 2014Q2

REPORT INFORMATION
  Report Type: Spontaneous
  Country: AU (occurrence: AU)
  Receive Date: 20140604
  Receipt Date: 20140604
  Transmission Date: 20141212
  Serious: Yes (Hospitalization, Other)
  Sender: FDA-Public Use
  Company Number: AU-ACTAVIS PTY LTD-2014-12126

PATIENT
  Sex: Male

DRUGS (4)
  1. QUETIAPINE (UNKNOWN) [Suspect]
     Indication: BIPOLAR DISORDER
     Dosage: 600 MG, DAILY
     Route: 064
  2. LITHIUM CARBONATE (UNKNOWN) [Suspect]
     Indication: BIPOLAR DISORDER
     Dosage: 900 MG, DAILY
     Route: 064
  3. PHENELZINE [Suspect]
     Indication: BIPOLAR DISORDER
     Dosage: 105 MG, DAILY
     Route: 064
  4. METFORMIN [Concomitant]
     Indication: POLYCYSTIC OVARIES
     Dosage: 500 MG, BID
     Route: 064

REACTIONS (6)
  - Drug withdrawal syndrome neonatal [Recovered/Resolved]
  - Foetal macrosomia [Recovered/Resolved]
  - Tachycardia foetal [Recovered/Resolved]
  - Foetal hypokinesia [Recovered/Resolved]
  - Muscle twitching [Recovered/Resolved]
  - Foetal exposure during pregnancy [Recovered/Resolved]
